FAERS Safety Report 14136789 (Version 1)
Quarter: 2017Q4

REPORT INFORMATION
  Report Type: Spontaneous
  Country: FR (occurrence: FR)
  Receive Date: 20171027
  Receipt Date: 20171027
  Transmission Date: 20180321
  Serious: Yes (Hospitalization)
  Sender: FDA-Public Use
  Company Number: FR-JNJFOC-20171018373

PATIENT
  Age: 84 Year
  Sex: Male

DRUGS (15)
  1. LOXAPAC [Suspect]
     Active Substance: LOXAPINE SUCCINATE
     Indication: AGITATION
     Route: 048
     Dates: start: 20160722, end: 20170701
  2. TITANOREINE [Concomitant]
     Active Substance: CARRAGEENAN\TITANIUM\ZINC
     Dosage: 1 TO 4 APPLICATIONS
     Route: 003
     Dates: start: 20170614
  3. TITANOREINE [Concomitant]
     Active Substance: CARRAGEENAN\TITANIUM\ZINC
     Dosage: RECTAL,1 OR 2 SUPPOSITORY
     Route: 003
     Dates: start: 20170614
  4. CARDENSIEL [Concomitant]
     Active Substance: BISOPROLOL FUMARATE
     Dosage: MORNING
     Route: 048
     Dates: start: 20170602
  5. INEXIUM [Concomitant]
     Active Substance: ESOMEPRAZOLE
     Dosage: EVENING
     Route: 048
     Dates: start: 20160915
  6. ELIQUIS [Concomitant]
     Active Substance: APIXABAN
     Dosage: MORNING AND EVENING
     Route: 048
     Dates: start: 20170602
  7. XATRAL [Concomitant]
     Active Substance: ALFUZOSIN
     Dosage: AT EVENING
     Route: 048
     Dates: start: 20170708
  8. DAFALGAN [Concomitant]
     Active Substance: ACETAMINOPHEN
     Route: 048
     Dates: start: 20160817
  9. LOXAPAC [Suspect]
     Active Substance: LOXAPINE SUCCINATE
     Indication: PSYCHOTIC DISORDER
     Route: 048
     Dates: start: 20160722, end: 20170701
  10. RISPERDAL [Suspect]
     Active Substance: RISPERIDONE
     Indication: DEMENTIA
     Route: 048
     Dates: start: 20161214, end: 20170701
  11. GAVISCON [Concomitant]
     Active Substance: ALUMINUM HYDROXIDE\MAGNESIUM CARBONATE
     Route: 048
     Dates: start: 20170601
  12. DEBRIDAT [Concomitant]
     Active Substance: TRIMEBUTINE MALEATE
     Dosage: 2 AT 8H, 2 AT 12H, 2 AT 19H
     Route: 048
     Dates: start: 20170705
  13. HEXTRIL [Concomitant]
     Route: 002
     Dates: start: 20170425
  14. OMIX [Concomitant]
     Active Substance: TAMSULOSIN HYDROCHLORIDE
     Dosage: MORNING
     Route: 048
     Dates: start: 20161011
  15. NORSET [Concomitant]
     Active Substance: MIRTAZAPINE
     Dosage: EVENING
     Route: 048
     Dates: start: 20160715

REACTIONS (2)
  - Subileus [Recovered/Resolved]
  - Faecal vomiting [Recovered/Resolved]

NARRATIVE: CASE EVENT DATE: 20170701
